FAERS Safety Report 18653953 (Version 1)
Quarter: 2020Q4

REPORT INFORMATION
  Report Type: Spontaneous
  Country: US (occurrence: US)
  Receive Date: 20201222
  Receipt Date: 20201222
  Transmission Date: 20210114
  Serious: No
  Sender: FDA-Public Use
  Company Number: None

PATIENT
  Age: 63 Year
  Sex: Female

DRUGS (1)
  1. ENBREL [Suspect]
     Active Substance: ETANERCEPT
     Indication: RHEUMATOID ARTHRITIS
     Route: 058
     Dates: start: 20201118, end: 20201218

REACTIONS (4)
  - Injection site pruritus [None]
  - Injection site erythema [None]
  - Administration site reaction [None]
  - Injection site swelling [None]

NARRATIVE: CASE EVENT DATE: 20201120
